FAERS Safety Report 5151097-5 (Version None)
Quarter: 2006Q4

REPORT INFORMATION
  Report Type: 
  Country: None (occurrence: None)
  Receive Date: 20061114
  Receipt Date: 20061114
  Transmission Date: 20070319
  Serious: No
  Sender: FDA-Public Use
  Company Number: None

PATIENT
  Age: 29 Year
  Sex: Female
  Weight: 66.6788 kg

DRUGS (1)
  1. MIRENA [Suspect]
     Indication: CONTRACEPTION
     Dosage: INTRA-UTERI
     Route: 015
     Dates: start: 20060725, end: 20061107

REACTIONS (5)
  - EMOTIONAL DISORDER [None]
  - FALLOPIAN TUBE DISORDER [None]
  - INFECTION [None]
  - IUCD COMPLICATION [None]
  - PAIN [None]
